FAERS Safety Report 6345436-7 (Version None)
Quarter: 2009Q3

REPORT INFORMATION
  Report Type: 
  Country: None (occurrence: None)
  Receive Date: 20090909
  Receipt Date: 20090901
  Transmission Date: 20100115
  Serious: Yes (Hospitalization)
  Sender: FDA-Public Use
  Company Number: US-AVENTIS-200917830GDDC

PATIENT
  Age: 70 Year
  Sex: Male
  Weight: 61.23 kg

DRUGS (10)
  1. TAXOTERE [Suspect]
     Route: 042
     Dates: start: 20090427, end: 20090711
  2. VIDAZA [Suspect]
     Route: 042
     Dates: start: 20090427, end: 20090711
  3. TRAVATAN [Concomitant]
     Dosage: DOSE: 1 GTT
     Route: 031
  4. AMLODIPINE BESYLATE AND BENAZEPRIL HCL [Concomitant]
     Dosage: DOSE: UNK
     Route: 048
  5. ZOLADEX [Concomitant]
     Route: 058
  6. UNKNOWN DRUG [Concomitant]
     Dosage: DOSE: 1 GTT
     Route: 031
  7. HYDROCHLOROTHIAZIDE [Concomitant]
     Dosage: DOSE: 1 TAB
  8. COMPAZINE [Concomitant]
     Route: 048
  9. PREDNISONE TAB [Concomitant]
     Route: 048
  10. DEXAMETHASONE [Concomitant]
     Dosage: DOSE: 8 MG 12 HOURS, 3 HOURS BEFORE DOCETAXEL TREATMENT
     Route: 048

REACTIONS (4)
  - ANAEMIA [None]
  - FATIGUE [None]
  - FEBRILE NEUTROPENIA [None]
  - HYPONATRAEMIA [None]
